FAERS Safety Report 13535200 (Version 1)
Quarter: 2017Q2

REPORT INFORMATION
  Report Type: Report from Study
  Country: US (occurrence: US)
  Receive Date: 20170511
  Receipt Date: 20170511
  Transmission Date: 20170830
  Serious: Yes (Other)
  Sender: FDA-Public Use
  Company Number: US-AMGEN-USASL2017070936

PATIENT
  Age: 60 Year
  Sex: Female
  Weight: 170.1 kg

DRUGS (18)
  1. MEGARED PLANT OMEGA [Concomitant]
     Dosage: 3300 MG, QD
  2. ZOSTER (ACYCLOVIR) [Concomitant]
     Active Substance: ACYCLOVIR
     Dosage: UNK
     Route: 058
     Dates: start: 201308
  3. EPIPEN [Concomitant]
     Active Substance: EPINEPHRINE
     Dosage: 0.3 MG/ 0.3 ML, UNK
  4. VENTOLIN HFA [Concomitant]
     Active Substance: ALBUTEROL SULFATE
     Dosage: 90 MUG, UNK
  5. PNEUMOVAX 23 POLYVALENT [Concomitant]
     Dosage: UNK
     Dates: start: 201308
  6. TRAMADOL. [Concomitant]
     Active Substance: TRAMADOL
     Dosage: 50 MG, UNK
     Route: 048
  7. CALCIUM CITRATE WITH VITAMIN D3 [Concomitant]
     Dosage: 315 MG- 250 UNIT (2 TABLETS), QD
     Route: 048
  8. MILK THISTLE [Concomitant]
     Active Substance: MILK THISTLE
     Dosage: 150 MG, BID
  9. PROLIA [Suspect]
     Active Substance: DENOSUMAB
     Indication: OSTEOPOROSIS
     Dosage: 60 MG, Q6MO
     Route: 058
     Dates: start: 201505
  10. C COMPLEX [Concomitant]
     Dosage: 1000 MG, QD
     Route: 048
  11. VITAMIN B12 [Concomitant]
     Active Substance: CYANOCOBALAMIN
     Dosage: 2000 MUG, QD
  12. VITAMIN D3 [Concomitant]
     Active Substance: CHOLECALCIFEROL
     Dosage: 5000 UNIT, QD
     Route: 048
  13. FIBER [Concomitant]
     Active Substance: PSYLLIUM HUSK
     Dosage: 3.24 G, QD
  14. FLUVIRIN NOS [Concomitant]
     Active Substance: INFLUENZA VIRUS VACCINE
     Dosage: 45 MUG/0.5 ML, UNK
     Route: 030
     Dates: start: 20140110
  15. CALCIUM [Suspect]
     Active Substance: CALCIUM
     Indication: PRODUCT USED FOR UNKNOWN INDICATION
     Dosage: 300 MG, QD
     Route: 065
  16. ALPRAZOLAM. [Concomitant]
     Active Substance: ALPRAZOLAM
     Dosage: 0.5 MG, UNK
     Route: 048
  17. UBIQUINOL [Concomitant]
     Active Substance: UBIQUINOL
     Dosage: 100 MG, QD
     Route: 048
  18. OCUVITE [Concomitant]
     Active Substance: VITAMINS
     Dosage: 1000 UNIT (200 MG-60 UNIT-2 MG), QD

REACTIONS (13)
  - Nocturia [Unknown]
  - Arrhythmia [Unknown]
  - Upper-airway cough syndrome [Unknown]
  - Sneezing [Unknown]
  - Menopausal disorder [Unknown]
  - Rhinorrhoea [Unknown]
  - Paraesthesia [Unknown]
  - Insomnia [Unknown]
  - Blood cholesterol increased [Unknown]
  - Weight decreased [Unknown]
  - Dysphagia [Unknown]
  - Gingival bleeding [Unknown]
  - Pain in extremity [Unknown]
